FAERS Safety Report 24704970 (Version 2)
Quarter: 2025Q4

REPORT INFORMATION
  Report Type: Spontaneous
  Country: US (occurrence: US)
  Receive Date: 20241206
  Receipt Date: 20251215
  Transmission Date: 20260117
  Serious: No
  Sender: AMNEAL
  Company Number: US-AMNEAL PHARMACEUTICALS-2024-AMRX-03717

PATIENT
  Age: 39 Year
  Sex: Male
  Weight: 82.993 kg

DRUGS (1)
  1. COLESTIPOL HYDROCHLORIDE [Suspect]
     Active Substance: COLESTIPOL HYDROCHLORIDE
     Indication: Bile acid malabsorption
     Dosage: 2 TABLETS, (1 GM) 1 /DAY
     Route: 048
     Dates: start: 20240731, end: 20241007

REACTIONS (3)
  - Diarrhoea [Recovered/Resolved]
  - Therapeutic response changed [Unknown]
  - Product substitution issue [Unknown]

NARRATIVE: CASE EVENT DATE: 20240731
